FAERS Safety Report 5157329-1 (Version None)
Quarter: 2006Q4

REPORT INFORMATION
  Report Type: 
  Country: None (occurrence: None)
  Receive Date: 20061127
  Receipt Date: 20061102
  Transmission Date: 20070319
  Serious: Yes (Death, Life-Threatening, Hospitalization, Other)
  Sender: FDA-Public Use
  Company Number: PHBS2006JP17251

PATIENT
  Age: 73 Year
  Sex: Female
  Weight: 57 kg

DRUGS (3)
  1. GLEEVEC [Suspect]
     Indication: GASTROINTESTINAL STROMAL TUMOUR
     Dosage: 400 MG/DAY
     Route: 048
     Dates: start: 20060207, end: 20060413
  2. GLEEVEC [Suspect]
     Dosage: 400 MG/DAY
     Route: 048
     Dates: start: 20060502, end: 20061010
  3. WARFARIN SODIUM [Concomitant]
     Route: 048
     Dates: start: 20040730, end: 20061104

REACTIONS (17)
  - ALANINE AMINOTRANSFERASE INCREASED [None]
  - ALOPECIA [None]
  - ANOREXIA [None]
  - ASPARTATE AMINOTRANSFERASE INCREASED [None]
  - ASTHENIA [None]
  - BLOOD ALKALINE PHOSPHATASE INCREASED [None]
  - CARDIO-RESPIRATORY ARREST [None]
  - EYELID OEDEMA [None]
  - FACE OEDEMA [None]
  - GAMMA-GLUTAMYLTRANSFERASE INCREASED [None]
  - GENERALISED OEDEMA [None]
  - LIVER DISORDER [None]
  - NAUSEA [None]
  - PNEUMONIA ASPIRATION [None]
  - TOXIC SKIN ERUPTION [None]
  - URINE OUTPUT DECREASED [None]
  - VOMITING [None]
